FAERS Safety Report 7211453-8 (Version None)
Quarter: 2011Q1

REPORT INFORMATION
  Report Type: 
  Country: None (occurrence: None)
  Receive Date: 20110105
  Receipt Date: 20101216
  Transmission Date: 20110831
  Serious: No
  Sender: FDA-Public Use
  Company Number: US-B.I. PHARMACEUTICALS,INC./RIDGEFIELD-2010-BP-14953BP

PATIENT
  Age: 75 Year
  Sex: Female

DRUGS (3)
  1. DIOVAN [Concomitant]
     Indication: HYPERTENSION
  2. PRADAXA [Suspect]
     Dosage: 300 MG
     Route: 048
     Dates: start: 20101202, end: 20101215
  3. INSULIN [Concomitant]
     Indication: DIABETES MELLITUS
     Dates: start: 20060101

REACTIONS (2)
  - HAEMATOCHEZIA [None]
  - OCULAR HYPERAEMIA [None]
